FAERS Safety Report 6637403-0 (Version None)
Quarter: 2010Q1

REPORT INFORMATION
  Report Type: 
  Country: None (occurrence: None)
  Receive Date: 20100316
  Receipt Date: 20100315
  Transmission Date: 20100710
  Serious: Yes (Death)
  Sender: FDA-Public Use
  Company Number: TW-MERCK-1003TWN00009

PATIENT
  Age: 67 Year
  Sex: Female
  Weight: 40 kg

DRUGS (1)
  1. FOSAMAX PLUS D [Suspect]
     Indication: OSTEOPOROSIS
     Route: 048
     Dates: start: 20090618, end: 20091001

REACTIONS (1)
  - RESPIRATORY FAILURE [None]
